FAERS Safety Report 19237708 (Version 1)
Quarter: 2021Q2

REPORT INFORMATION
  Report Type: Spontaneous
  Country: IN (occurrence: IN)
  Receive Date: 20210510
  Receipt Date: 20210510
  Transmission Date: 20210717
  Serious: Yes (Death, Hospitalization)
  Sender: FDA-Public Use
  Company Number: IN-EMCURE PHARMACEUTICALS LTD-2021-EPL-001485

PATIENT

DRUGS (4)
  1. VINGRAF [Suspect]
     Active Substance: TACROLIMUS
     Indication: HEART TRANSPLANT
     Dosage: 2 MILLIGRAM, BID
     Route: 048
     Dates: start: 2018, end: 20210102
  2. DILZEM SR [Concomitant]
     Active Substance: DILTIAZEM
     Indication: HEART TRANSPLANT
     Dosage: 90
     Route: 048
     Dates: start: 2018, end: 20210102
  3. MYFORTIC [Concomitant]
     Active Substance: MYCOPHENOLATE SODIUM
     Indication: HEART TRANSPLANT
     Dosage: 360
     Route: 048
     Dates: start: 2018, end: 20210102
  4. SEPTRAN [Concomitant]
     Indication: HEART TRANSPLANT
     Dosage: UNK
     Route: 048
     Dates: start: 2018, end: 20210102

REACTIONS (1)
  - Myocardial infarction [Fatal]
